FAERS Safety Report 7946347-3 (Version None)
Quarter: 2011Q4

REPORT INFORMATION
  Report Type: 
  Country: None (occurrence: None)
  Receive Date: 20111129
  Receipt Date: 20111120
  Transmission Date: 20120403
  Serious: Yes (Hospitalization)
  Sender: FDA-Public Use
  Company Number: US-ACTELION-A-US2011-57391

PATIENT

DRUGS (3)
  1. REMODULIN [Suspect]
  2. TRACLEER [Suspect]
     Indication: PULMONARY ARTERIAL HYPERTENSION
     Dosage: UNK
     Route: 048
     Dates: start: 20100405
  3. REVATIO [Concomitant]

REACTIONS (2)
  - INJECTION SITE CELLULITIS [None]
  - INFECTION [None]
